FAERS Safety Report 8062300-6 (Version None)
Quarter: 2012Q1

REPORT INFORMATION
  Report Type: 
  Country: None (occurrence: None)
  Receive Date: 20120123
  Receipt Date: 20120118
  Transmission Date: 20120608
  Serious: No
  Sender: FDA-Public Use
  Company Number: US-PFIZER INC-2012016662

PATIENT
  Sex: Female
  Weight: 68.027 kg

DRUGS (4)
  1. CHANTIX [Suspect]
     Dosage: 0.5 MG, 2X/DAY
     Route: 048
     Dates: start: 20120101, end: 20120101
  2. KLONOPIN [Suspect]
     Indication: ANXIETY
     Dosage: 0.5 MG, AS NEEDED
  3. KLONOPIN [Suspect]
     Indication: SLEEP DISORDER
  4. CHANTIX [Suspect]
     Dosage: 1 MG, 2X/DAY
     Route: 048
     Dates: start: 20120101

REACTIONS (2)
  - INCORRECT DOSE ADMINISTERED [None]
  - SLEEP DISORDER [None]
